FAERS Safety Report 10953847 (Version 1)
Quarter: 2015Q1

REPORT INFORMATION
  Report Type: Spontaneous
  Country: US (occurrence: None)
  Receive Date: 20150226
  Receipt Date: 20150226
  Transmission Date: 20150721
  Serious: Yes (Hospitalization)
  Sender: FDA-Public Use
  Company Number: TPA2010A04943

PATIENT
  Age: 82 Year
  Sex: Male
  Weight: 100.7 kg

DRUGS (5)
  1. AMLODIPINE [Concomitant]
     Active Substance: AMLODIPINE BESYLATE
  2. LASIX [Concomitant]
     Active Substance: FUROSEMIDE
  3. LISINOPRIL/HCTZ (HYDROCHLOTHIAZIDE, LISINOPRIL) [Concomitant]
  4. ULORIC [Suspect]
     Active Substance: FEBUXOSTAT
     Indication: GOUT
     Route: 048
     Dates: start: 201007
  5. ZEMPLAR [Concomitant]
     Active Substance: PARICALCITOL

REACTIONS (1)
  - Renal failure [None]

NARRATIVE: CASE EVENT DATE: 20100730
